FAERS Safety Report 6764526-8 (Version None)
Quarter: 2010Q2

REPORT INFORMATION
  Report Type: 
  Country: None (occurrence: None)
  Receive Date: 20100610
  Receipt Date: 20100607
  Transmission Date: 20101027
  Serious: Yes (Other)
  Sender: FDA-Public Use
  Company Number: FR-GENZYME-THYM-1001393

PATIENT
  Sex: Male
  Weight: 73 kg

DRUGS (9)
  1. THYMOGLOBULIN [Suspect]
     Indication: PROPHYLAXIS AGAINST TRANSPLANT REJECTION
     Dosage: 1.25 MG/KG, QD
     Route: 042
     Dates: start: 20100222, end: 20100303
  2. MYCOPHENOLATE MOFETIL [Concomitant]
     Indication: PROPHYLAXIS AGAINST TRANSPLANT REJECTION
     Dosage: 1 G, BID
     Dates: start: 20100222
  3. METHYLPREDNISOLONE [Concomitant]
     Indication: PROPHYLAXIS AGAINST TRANSPLANT REJECTION
     Dosage: 80 MG, UNK
     Dates: start: 20100222, end: 20100303
  4. LEXOMIL [Concomitant]
     Indication: DRUG USE FOR UNKNOWN INDICATION
  5. FUROSEMIDE [Concomitant]
     Indication: DIURETIC THERAPY
     Dosage: 1 G, UNK
     Dates: start: 20100222
  6. GANCICLOVIR [Concomitant]
     Indication: ANTIVIRAL PROPHYLAXIS
     Dosage: 100 MG, UNK
     Dates: start: 20100222, end: 20100224
  7. CHLORPHENIRAMINE MALEATE [Concomitant]
     Indication: ANTIALLERGIC THERAPY
     Dosage: 5 MG, UNK
     Dates: start: 20100222, end: 20100303
  8. ESCITALOPRAM [Concomitant]
     Indication: DRUG USE FOR UNKNOWN INDICATION
     Dosage: 20 MG, UNK
     Dates: start: 20100222
  9. TACROLIMUS [Concomitant]
     Indication: PROPHYLAXIS AGAINST TRANSPLANT REJECTION
     Dosage: 4 MG, BID
     Dates: start: 20100222

REACTIONS (2)
  - ANGIOEDEMA [None]
  - TACHYCARDIA [None]
